FAERS Safety Report 5157430-2 (Version None)
Quarter: 2006Q4

REPORT INFORMATION
  Report Type: 
  Country: None (occurrence: None)
  Receive Date: 20061116
  Receipt Date: 20061110
  Transmission Date: 20070319
  Serious: Yes (Hospitalization, Other)
  Sender: FDA-Public Use
  Company Number: 2006138631

PATIENT
  Age: 55 Year
  Sex: Male
  Weight: 110.6777 kg

DRUGS (5)
  1. LIPITOR [Suspect]
     Indication: BLOOD CHOLESTEROL INCREASED
     Dosage: 80  MG (80 MG, 1 IN 1 D),  ORAL
     Route: 048
     Dates: start: 20040101, end: 20060101
  2. LOTREL [Concomitant]
  3. MAXALT [Concomitant]
  4. ALLEGRA [Concomitant]
  5. TOPROL-XL [Concomitant]

REACTIONS (1)
  - GLOBAL AMNESIA [None]
